FAERS Safety Report 4586511-7 (Version None)
Quarter: 2005Q1

REPORT INFORMATION
  Report Type: 
  Country: None (occurrence: None)
  Receive Date: 20050214
  Receipt Date: 20050207
  Transmission Date: 20050727
  Serious: Yes (Hospitalization)
  Sender: FDA-Public Use
  Company Number: T04-USA-08171-01

PATIENT
  Age: 76 Year
  Sex: Male
  Weight: 64.4108 kg

DRUGS (2)
  1. MEMANTINE HCL [Suspect]
     Indication: POST HERPETIC NEURALGIA
     Dates: start: 20041029, end: 20041201
  2. ASPIRIN [Concomitant]

REACTIONS (4)
  - DELIRIUM [None]
  - HOMICIDAL IDEATION [None]
  - MENTAL DISORDER [None]
  - RESTLESSNESS [None]
